FAERS Safety Report 14581832 (Version 1)
Quarter: 2018Q1

REPORT INFORMATION
  Report Type: Spontaneous
  Country: FR (occurrence: FR)
  Receive Date: 20180228
  Receipt Date: 20180228
  Transmission Date: 20180509
  Serious: Yes (Hospitalization)
  Sender: FDA-Public Use
  Company Number: FR-TEVA-2018-FR-860414

PATIENT
  Age: 2 Year
  Sex: Male

DRUGS (2)
  1. CISPLATINE ACCORD [Suspect]
     Active Substance: CISPLATIN
     Indication: NEUROBLASTOMA
     Dosage: 80MG/M2 : 50MG DEPENDING ON CYCLE
     Route: 041
     Dates: start: 20171106
  2. VINCRISTINE [Suspect]
     Active Substance: VINCRISTINE
     Indication: NEUROBLASTOMA
     Dosage: 1.5 MG/M2:0.93 MG DEPENDING ON CYCLE
     Route: 041
     Dates: start: 20171028

REACTIONS (1)
  - Venoocclusive disease [Not Recovered/Not Resolved]

NARRATIVE: CASE EVENT DATE: 20171112
